FAERS Safety Report 24203111 (Version 1)
Quarter: 2024Q3

REPORT INFORMATION
  Report Type: Report from Study
  Country: BR (occurrence: BR)
  Receive Date: 20240813
  Receipt Date: 20240813
  Transmission Date: 20241017
  Serious: Yes (Other)
  Sender: UCB
  Company Number: BR-UCBSA-2024039557

PATIENT
  Age: 64 Year
  Sex: Male
  Weight: 67 kg

DRUGS (3)
  1. CERTOLIZUMAB PEGOL [Suspect]
     Active Substance: CERTOLIZUMAB PEGOL
     Indication: Rheumatoid arthritis
     Dosage: UNK
     Route: 058
     Dates: start: 20230321, end: 202401
  2. AZITHROMYCIN [Concomitant]
     Active Substance: AZITHROMYCIN
     Indication: Bronchiectasis
     Dosage: 3 TIMES IN A WEEK
     Route: 048
     Dates: start: 20220101
  3. ACETYLCYSTEINE [Concomitant]
     Active Substance: ACETYLCYSTEINE
     Indication: Bronchiectasis
     Dosage: ONCE IN A DAY
     Route: 048
     Dates: start: 20220101

REACTIONS (4)
  - Bronchiectasis [Unknown]
  - Cystic fibrosis [Unknown]
  - Hot flush [Unknown]
  - Malaise [Recovered/Resolved]

NARRATIVE: CASE EVENT DATE: 20230301
